FAERS Safety Report 4873377-0 (Version None)
Quarter: 2006Q1

REPORT INFORMATION
  Report Type: 
  Country: None (occurrence: None)
  Receive Date: 20060105
  Receipt Date: 20051221
  Transmission Date: 20060701
  Serious: Yes (Other)
  Sender: FDA-Public Use
  Company Number: HQWYE131022DEC05

PATIENT
  Age: 16 Year

DRUGS (1)
  1. ENBREL [Suspect]
     Indication: JUVENILE ARTHRITIS

REACTIONS (2)
  - IRITIS [None]
  - UVEITIS [None]
